FAERS Safety Report 24614421 (Version 1)
Quarter: 2024Q4

REPORT INFORMATION
  Report Type: Other
  Country: CN (occurrence: CN)
  Receive Date: 20241113
  Receipt Date: 20241113
  Transmission Date: 20250114
  Serious: Yes (Hospitalization)
  Sender: INCYTE
  Company Number: CN-002147023-NVSC2024CN216546

PATIENT

DRUGS (4)
  1. RUXOLITINIB [Suspect]
     Active Substance: RUXOLITINIB
     Indication: Hepatitis viral
     Dosage: 2.000 DOSAGE FORM, BID
     Route: 048
     Dates: start: 20240922, end: 20240925
  2. CYCLOPHOSPHAMIDE [Suspect]
     Active Substance: CYCLOPHOSPHAMIDE
     Indication: Hepatitis viral
     Dosage: 0.600 G, QD
     Route: 041
     Dates: start: 20240923, end: 20240924
  3. VINCRISTINE SULFATE [Suspect]
     Active Substance: VINCRISTINE SULFATE
     Indication: Hepatitis viral
     Dosage: UNK
     Route: 042
     Dates: start: 20240923, end: 20240924
  4. DOXORUBICIN HYDROCHLORIDE [Suspect]
     Active Substance: DOXORUBICIN HYDROCHLORIDE
     Indication: Hepatitis viral
     Dosage: 30.000 MG, QD
     Route: 041
     Dates: start: 20240924, end: 20240925

REACTIONS (1)
  - White blood cell count decreased [Unknown]

NARRATIVE: CASE EVENT DATE: 20240929
